FAERS Safety Report 9742915 (Version 1)
Quarter: 2013Q4

REPORT INFORMATION
  Report Type: Spontaneous
  Country: US (occurrence: US)
  Receive Date: 20131210
  Receipt Date: 20131210
  Transmission Date: 20140711
  Serious: No
  Sender: FDA-Public Use
  Company Number: US-VIIV HEALTHCARE LIMITED-A1049133A

PATIENT
  Age: 32 Year
  Sex: Male

DRUGS (12)
  1. TIVICAY [Suspect]
     Indication: HIV INFECTION
     Route: 065
     Dates: start: 20130910
  2. ABACAVIR [Suspect]
     Indication: HIV INFECTION
     Route: 065
     Dates: start: 20130910
  3. LAMIVUDINE-HIV [Suspect]
     Indication: HIV INFECTION
     Route: 065
     Dates: start: 20130910
  4. ASPIRIN [Concomitant]
  5. COREG [Concomitant]
  6. IMDUR [Concomitant]
  7. LIPITOR [Concomitant]
  8. COVERSYL [Concomitant]
  9. LASIX [Concomitant]
  10. UNKNOWN [Concomitant]
  11. HYDRALAZINE [Concomitant]
  12. LISINOPRIL [Concomitant]

REACTIONS (1)
  - Rash [Recovered/Resolved]
